FAERS Safety Report 10583344 (Version 1)
Quarter: 2014Q4

REPORT INFORMATION
  Report Type: Report from Study
  Country: US (occurrence: None)
  Receive Date: 20141112
  Receipt Date: 20141112
  Transmission Date: 20150529
  Serious: Yes (Hospitalization)
  Sender: FDA-Public Use
  Company Number: HA13-349-AE

PATIENT
  Age: 83 Year
  Sex: Male
  Weight: 71 kg

DRUGS (28)
  1. ORAL DUTASTERIDE (AVO DART) [Concomitant]
  2. ORAL ALENDRONATE SODIUM (FOSAMAX) [Concomitant]
  3. ORAL ENTACAPONE (COMTAN) [Concomitant]
  4. ORAL POTASSIUM CHLORIDE (K-DUR) [Concomitant]
  5. LANTUS [Concomitant]
     Active Substance: INSULIN GLARGINE
  6. NAPROXEN TABLETS, USP [Suspect]
     Active Substance: NAPROXEN
     Indication: OSTEOARTHRITIS
     Route: 048
     Dates: start: 20130709
  7. CELECOXIB IBUPROFEN NAPROXEN CODE NOT BROKEN [Suspect]
     Active Substance: CELECOXIB\IBUPROFEN\NAPROXEN
     Indication: RHEUMATOID ARTHRITIS
     Dates: start: 20130709
  8. ORAL UBIDECARENONE (C010) [Concomitant]
  9. FLUNISOLIDE INH [Concomitant]
  10. INTRAVENOUS MIDAZOLAM HYDROCHLORIDE (VERSED) [Concomitant]
  11. ORAL CALCIUM CITRATE [Concomitant]
  12. ORAL DULOXETINE HYDROCHLORIDE (CYMBALTA) [Concomitant]
  13. ORAL FUROSEMIDE [Concomitant]
  14. ORAL LISINOPRIL [Concomitant]
  15. ORAL METHYLPHENIDATE HYDROCHLORIDE (RITALIN) [Concomitant]
  16. ORAL TAMSULOSIN [Concomitant]
  17. ORAL CARBIDOPA, LEVODOPA [Concomitant]
  18. ORAL MODAFINIL (PROVIGIL) [Concomitant]
  19. ORAL THIOCTIC ACID (ALPHA LIPOIC ACID) [Concomitant]
  20. ORAL INSULIN ASPART (NOVOLOG) [Concomitant]
  21. ORAL EZETIMIBE (ZETIA) [Concomitant]
  22. CYANOCOBALAMIN. [Concomitant]
     Active Substance: CYANOCOBALAMIN
  23. ORAL PRAMIPEXOLE (MIRAPEX) [Concomitant]
  24. ORAL TRAZODONE HYDROCHLORIDE [Concomitant]
  25. INTRAVENOUS FENTANYL [Concomitant]
  26. NAPROXEN TABLETS, USP [Suspect]
     Active Substance: NAPROXEN
     Indication: RHEUMATOID ARTHRITIS
     Route: 048
     Dates: start: 20130709
  27. CELECOXIB IBUPROFEN NAPROXEN CODE NOT BROKEN [Suspect]
     Active Substance: CELECOXIB\IBUPROFEN\NAPROXEN
     Indication: OSTEOARTHRITIS
     Dates: start: 20130709
  28. ORAL ESOMEPRAZOLE (NEXIUM) [Concomitant]

REACTIONS (2)
  - Atrial fibrillation [None]
  - Hypotension [None]

NARRATIVE: CASE EVENT DATE: 20130724
